FAERS Safety Report 9571844 (Version 1)
Quarter: 2013Q4

REPORT INFORMATION
  Report Type: Spontaneous
  Country: AU (occurrence: AU)
  Receive Date: 20131001
  Receipt Date: 20131001
  Transmission Date: 20140711
  Serious: Yes (Other)
  Sender: FDA-Public Use
  Company Number: AU-PFIZER INC-2013280129

PATIENT
  Sex: Male

DRUGS (2)
  1. CHAMPIX [Suspect]
     Dosage: 0.5 MG, UNK
  2. CHAMPIX [Suspect]
     Dosage: 1.0 MG, UNK

REACTIONS (2)
  - Chest pain [Unknown]
  - Painful respiration [Unknown]
